FAERS Safety Report 8892363 (Version 1)
Quarter: 2012Q4

REPORT INFORMATION
  Report Type: 
  Country: US (occurrence: US)
  Receive Date: 20121107
  Receipt Date: 20121107
  Transmission Date: 20130627
  Serious: Yes (Other)
  Sender: FDA-Public Use
  Company Number: US-GLAXOSMITHKLINE-A0999585A

PATIENT
  Age: 72 Year
  Sex: Female

DRUGS (7)
  1. SERETIDE [Suspect]
     Indication: ASTHMA
     Dosage: 1PUFF Twice per day
     Route: 055
     Dates: start: 201208
  2. OMEPRAZOLE [Concomitant]
  3. PROAIR HFA [Concomitant]
     Route: 055
  4. WARFARIN [Concomitant]
  5. LEVOTHYROXINE [Concomitant]
  6. PREDNISONE [Concomitant]
  7. ANTIBIOTIC [Concomitant]

REACTIONS (3)
  - Pneumonia [Recovered/Resolved]
  - Dyspnoea exertional [Not Recovered/Not Resolved]
  - Dyspepsia [Not Recovered/Not Resolved]
